FAERS Safety Report 6468649-2 (Version None)
Quarter: 2009Q4

REPORT INFORMATION
  Report Type: 
  Country: None (occurrence: None)
  Receive Date: 20091203
  Receipt Date: 20091201
  Transmission Date: 20100525
  Serious: No
  Sender: FDA-Public Use
  Company Number: BR-ROCHE-650639

PATIENT
  Sex: Female
  Weight: 20 kg

DRUGS (3)
  1. TAMIFLU [Suspect]
     Dosage: DOSE: 12 MG/ML
     Route: 050
     Dates: start: 20090807
  2. BACLOFEN [Concomitant]
     Dosage: DRUG GIVEN AS: BACLOPHEN
     Route: 048
  3. LACTULONA [Concomitant]
     Indication: GASTROINTESTINAL DISORDER
     Route: 048

REACTIONS (2)
  - DRUG ADMINISTRATION ERROR [None]
  - NO ADVERSE EVENT [None]
